FAERS Safety Report 5312998-8 (Version None)
Quarter: 2007Q2

REPORT INFORMATION
  Report Type: 
  Country: None (occurrence: None)
  Receive Date: 20070430
  Receipt Date: 20070418
  Transmission Date: 20071010
  Serious: Yes (Hospitalization)
  Sender: FDA-Public Use
  Company Number: JP-PFIZER INC-2007010909

PATIENT
  Sex: Male
  Weight: 60 kg

DRUGS (2)
  1. ZITHROMAC [Suspect]
     Indication: PYREXIA
     Route: 048
     Dates: start: 20020925, end: 20020927
  2. PL [Concomitant]
     Dates: start: 20020925, end: 20020927

REACTIONS (1)
  - DRUG RASH WITH EOSINOPHILIA AND SYSTEMIC SYMPTOMS [None]
